FAERS Safety Report 19228088 (Version 1)
Quarter: 2021Q2

REPORT INFORMATION
  Report Type: Spontaneous
  Country: GB (occurrence: GB)
  Receive Date: 20210507
  Receipt Date: 20210507
  Transmission Date: 20210717
  Serious: Yes (Disabling)
  Sender: FDA-Public Use
  Company Number: GB-JNJFOC-20210508676

PATIENT
  Age: 24 Year
  Sex: Male

DRUGS (10)
  1. MIRTAZAPINE. [Concomitant]
     Active Substance: MIRTAZAPINE
     Indication: ANTIDEPRESSANT THERAPY
     Dosage: 7.5MG ? UPTITRATED TO 45MG DAILY THEN REDUCED DOWN TO STOP
     Route: 048
     Dates: start: 2014, end: 2015
  2. SERTRALINE [Concomitant]
     Active Substance: SERTRALINE HYDROCHLORIDE
     Indication: ANTIDEPRESSANT THERAPY
     Dosage: 50MG INITALLY THEN 100MG
     Route: 048
     Dates: start: 2014
  3. CITALOPRAM [Concomitant]
     Active Substance: CITALOPRAM HYDROBROMIDE
     Dosage: INITIALLY
     Route: 065
     Dates: start: 201507
  4. RISPERDAL [Suspect]
     Active Substance: RISPERIDONE
     Indication: PRODUCT USED FOR UNKNOWN INDICATION
     Route: 048
  5. CIPRALEX [Concomitant]
     Active Substance: ESCITALOPRAM OXALATE
     Indication: ANTIDEPRESSANT THERAPY
     Route: 048
     Dates: start: 201507, end: 201509
  6. TRAZODONE [Concomitant]
     Active Substance: TRAZODONE HYDROCHLORIDE
     Indication: ANTIDEPRESSANT THERAPY
     Dosage: 50MG INITIALLY INCREASED TO 100MG DAILY THEN REDUCED TO 50MG BEFORE STOPPING
     Route: 048
     Dates: start: 2015, end: 201507
  7. TRAZODONE [Concomitant]
     Active Substance: TRAZODONE HYDROCHLORIDE
     Dosage: 50MG INITIALLY INCREASED TO 100MG DAILY THEN REDUCED TO 50MG BEFORE STOPPING
     Route: 048
     Dates: start: 2015, end: 201507
  8. TEMAZEPAM. [Concomitant]
     Active Substance: TEMAZEPAM
     Indication: POOR QUALITY SLEEP
     Route: 048
  9. SERTRALINE [Concomitant]
     Active Substance: SERTRALINE HYDROCHLORIDE
     Route: 048
  10. TRAZODONE [Concomitant]
     Active Substance: TRAZODONE HYDROCHLORIDE
     Dosage: 50MG INITIALLY INCREASED TO 100MG DAILY THEN REDUCED TO 50MG BEFORE STOPPING
     Route: 048
     Dates: start: 2015, end: 201507

REACTIONS (3)
  - Somnolence [Unknown]
  - Physical disability [Unknown]
  - Sedation [Unknown]
